FAERS Safety Report 7767961-4 (Version None)
Quarter: 2011Q3

REPORT INFORMATION
  Report Type: 
  Country: None (occurrence: None)
  Receive Date: 20110922
  Receipt Date: 20110318
  Transmission Date: 20111222
  Serious: Yes (Other)
  Sender: FDA-Public Use
  Company Number: US-ASTRAZENECA-2007UW05076

PATIENT
  Age: 19 Year
  Sex: Female
  Weight: 99.8 kg

DRUGS (10)
  1. DEPAKOTE [Concomitant]
  2. EFFEXOR XR [Concomitant]
     Dates: start: 20040226
  3. LITHIUM CARBONATE [Concomitant]
  4. DIAZEPAM [Concomitant]
  5. SEROQUEL [Suspect]
     Indication: SCHIZOAFFECTIVE DISORDER
     Dosage: 50 TO 300 MG BID
     Route: 048
     Dates: start: 20020101, end: 20070614
  6. GEODON [Concomitant]
     Dates: start: 20040419
  7. ABILIFY [Concomitant]
  8. INVEGA [Concomitant]
  9. SEROQUEL [Suspect]
     Route: 048
     Dates: start: 20040513
  10. FLUOXETINE [Concomitant]

REACTIONS (9)
  - HYPERLIPIDAEMIA [None]
  - TARDIVE DYSKINESIA [None]
  - SUICIDE ATTEMPT [None]
  - RENAL DISORDER [None]
  - TYPE 2 DIABETES MELLITUS [None]
  - OBESITY [None]
  - GASTRIC DISORDER [None]
  - MOVEMENT DISORDER [None]
  - BLOOD CHOLESTEROL INCREASED [None]
